FAERS Safety Report 6433576-3 (Version None)
Quarter: 2009Q4

REPORT INFORMATION
  Report Type: 
  Country: None (occurrence: None)
  Receive Date: 20091110
  Receipt Date: 20091030
  Transmission Date: 20100525
  Serious: Yes (Death, Life-Threatening, Hospitalization)
  Sender: FDA-Public Use
  Company Number: US-JNJFOC-20070303558

PATIENT
  Sex: Female
  Weight: 67.6 kg

DRUGS (21)
  1. GOLIMUMAB [Suspect]
     Route: 058
  2. GOLIMUMAB [Suspect]
     Dosage: WEEK 48
     Route: 058
  3. GOLIMUMAB [Suspect]
     Dosage: WEEK 44
     Route: 058
  4. GOLIMUMAB [Suspect]
     Dosage: WEEK 40
     Route: 058
  5. GOLIMUMAB [Suspect]
     Dosage: WEEK 36
     Route: 058
  6. GOLIMUMAB [Suspect]
     Dosage: WEEK 32
     Route: 058
  7. GOLIMUMAB [Suspect]
     Dosage: WEEK 28
     Route: 058
  8. GOLIMUMAB [Suspect]
     Dosage: WEEK 24
     Route: 058
  9. GOLIMUMAB [Suspect]
     Dosage: WEEK 20
     Route: 058
  10. GOLIMUMAB [Suspect]
     Dosage: WEEK 16
     Route: 058
  11. GOLIMUMAB [Suspect]
     Dosage: WEEK 12
     Route: 058
  12. GOLIMUMAB [Suspect]
     Dosage: WEEK 8
     Route: 058
  13. GOLIMUMAB [Suspect]
     Dosage: WEEK 4
     Route: 058
  14. GOLIMUMAB [Suspect]
     Indication: PSORIATIC ARTHROPATHY
     Dosage: WEEK 0
     Route: 058
  15. PROTONIX [Concomitant]
     Indication: NAUSEA
     Route: 048
  16. CELEXA [Concomitant]
     Indication: DEPRESSION
     Route: 048
  17. METHOTREXATE [Concomitant]
     Indication: RHEUMATOID ARTHRITIS
     Route: 030
  18. FOSAMAX [Concomitant]
     Indication: OSTEOPOROSIS
     Route: 048
  19. SULINDAC [Concomitant]
     Indication: RHEUMATOID ARTHRITIS
     Route: 048
  20. CALCIUM WITH VITAMIN D [Concomitant]
     Indication: OSTEOPOROSIS
     Route: 048
  21. MULTI-VITAMIN [Concomitant]
     Indication: NUTRITIONAL SUPPORT
     Route: 048

REACTIONS (2)
  - RADIATION OESOPHAGITIS [None]
  - SMALL CELL LUNG CANCER STAGE UNSPECIFIED [None]
